FAERS Safety Report 23825721 (Version 14)
Quarter: 2025Q4

REPORT INFORMATION
  Report Type: Report from Study
  Country: CA (occurrence: CA)
  Receive Date: 20240507
  Receipt Date: 20251231
  Transmission Date: 20260117
  Serious: Yes (Other)
  Sender: PFIZER
  Company Number: CA-PFIZER INC-202300130654

PATIENT
  Age: 46 Year
  Sex: Female
  Weight: 70 kg

DRUGS (34)
  1. RUXIENCE [Suspect]
     Active Substance: RITUXIMAB-PVVR
     Indication: Rheumatoid arthritis
     Dosage: 1 G, DAY 1 AND DAY 15
     Route: 042
     Dates: start: 20230309, end: 20230309
  2. RUXIENCE [Suspect]
     Active Substance: RITUXIMAB-PVVR
     Dosage: 1000 MG, ON DAY 15
     Route: 042
     Dates: start: 20230323, end: 20230323
  3. RUXIENCE [Suspect]
     Active Substance: RITUXIMAB-PVVR
     Dosage: 1000 MG, DAY 1 AND DAY 15 [AFTER 30 WEEKS (SUBSEQUENT TREATMENT DAY 1)]
     Route: 042
     Dates: start: 20231018, end: 20231018
  4. RUXIENCE [Suspect]
     Active Substance: RITUXIMAB-PVVR
     Dosage: 1000 MG, 2 WEEKS (DAY 1 AND DAY 15)
     Route: 042
     Dates: start: 20231102, end: 20231102
  5. RUXIENCE [Suspect]
     Active Substance: RITUXIMAB-PVVR
     Dosage: 1000 MG, DAY 1 AND DAY 15 (1000 MG, DAY 1 RETREATMENT)
     Route: 042
     Dates: start: 20240502, end: 20240502
  6. RUXIENCE [Suspect]
     Active Substance: RITUXIMAB-PVVR
     Dosage: 1000 MG, DAY 1 AND DAY 15
     Route: 042
     Dates: start: 20240517, end: 20240517
  7. RUXIENCE [Suspect]
     Active Substance: RITUXIMAB-PVVR
     Dosage: 1000 MG, DAY 1 AND DAY 15
     Route: 042
     Dates: start: 20241129
  8. RUXIENCE [Suspect]
     Active Substance: RITUXIMAB-PVVR
     Dosage: 1000 MG, AFTER 2 WEEKS  (1000 MG, DAY 1 AND DAY 15)
     Route: 042
     Dates: start: 20241213, end: 20241213
  9. RUXIENCE [Suspect]
     Active Substance: RITUXIMAB-PVVR
     Dosage: 1000 MG, DAY 1 AND DAY 15 (DAY 1)
     Route: 042
     Dates: start: 20250609
  10. RUXIENCE [Suspect]
     Active Substance: RITUXIMAB-PVVR
     Dosage: 1000 MG,  2 WEEKS (DAY 1 AND DAY 15)
     Route: 042
     Dates: start: 20250623
  11. RUXIENCE [Suspect]
     Active Substance: RITUXIMAB-PVVR
     Dosage: 1000MG, SUBSEQUENT DAY 1 (1000 MG, DAY 1 AND DAY 15, EVERY 24 TO 26 WEEKS)
     Route: 042
     Dates: start: 20251222
  12. ACETAMINOPHEN [Concomitant]
     Active Substance: ACETAMINOPHEN
     Indication: Premedication
     Dosage: 650 MG
     Dates: start: 20231018, end: 20231018
  13. ACETAMINOPHEN [Concomitant]
     Active Substance: ACETAMINOPHEN
     Dosage: 650 MG
     Dates: start: 20231102, end: 20231102
  14. ACETAMINOPHEN [Concomitant]
     Active Substance: ACETAMINOPHEN
     Dosage: UNK
     Dates: start: 20241213, end: 20241213
  15. ACETAMINOPHEN [Concomitant]
     Active Substance: ACETAMINOPHEN
     Dosage: UNK
     Dates: start: 20250609, end: 20250609
  16. ACETAMINOPHEN [Concomitant]
     Active Substance: ACETAMINOPHEN
     Dosage: UNK
     Dates: start: 20250623, end: 20250623
  17. ALEVE [Concomitant]
     Active Substance: NAPROXEN SODIUM
     Dosage: UNK
  18. CANNABIDIOL\HERBALS [Concomitant]
     Active Substance: CANNABIDIOL\HERBALS
     Dosage: UNK
  19. CELEBREX [Concomitant]
     Active Substance: CELECOXIB
     Dosage: 1 DF, DISCONTINUED
  20. DILAUDID [Concomitant]
     Active Substance: HYDROMORPHONE HYDROCHLORIDE
     Indication: Pain
     Dosage: UNK, 1X/DAY (QHS + PRN; AS NEEDED)
  21. DIPHENHYDRAMINE [Concomitant]
     Active Substance: DIPHENHYDRAMINE
     Indication: Premedication
     Dosage: 50 MG
     Dates: start: 20231018, end: 20231018
  22. DIPHENHYDRAMINE [Concomitant]
     Active Substance: DIPHENHYDRAMINE
     Dosage: 50 MG
     Dates: start: 20231102, end: 20231102
  23. DIPHENHYDRAMINE [Concomitant]
     Active Substance: DIPHENHYDRAMINE
     Dosage: UNK
     Dates: start: 20241213, end: 20241213
  24. DIPHENHYDRAMINE [Concomitant]
     Active Substance: DIPHENHYDRAMINE
     Dosage: UNK
     Dates: start: 20250609, end: 20250609
  25. DIPHENHYDRAMINE [Concomitant]
     Active Substance: DIPHENHYDRAMINE
     Dosage: UNK
     Dates: start: 20250623, end: 20250623
  26. DOSTINEX [Concomitant]
     Active Substance: CABERGOLINE
     Dosage: 0.5 MG, WEEKLY (1X WEEKLY)
  27. DOSTINEN [Concomitant]
     Dosage: 0.5 MG, WEEKLY (1X)
  28. DULOXETINE [Concomitant]
     Active Substance: DULOXETINE
     Dosage: 60 MG, DAILY
  29. LUMIGAN [Concomitant]
     Active Substance: BIMATOPROST
     Dosage: 2 DROP, EACH EYE, EVERY 2 HOURS
     Route: 047
  30. METHOTREXATE [Concomitant]
     Active Substance: METHOTREXATE
     Indication: Rheumatoid arthritis
     Dosage: 1 DF, AND IN 2003, DOSAGE UNKNOWN
     Dates: start: 201411, end: 201504
  31. PREDNISONE [Concomitant]
     Active Substance: PREDNISONE
     Dosage: UNK
  32. PROBIOTICS NOS [Concomitant]
     Active Substance: PROBIOTICS NOS
     Dosage: UNK, DAILY (1X DAILY)
  33. SULFASALAZINE [Concomitant]
     Active Substance: SULFASALAZINE
     Dosage: 30 MG, 1X/DAY
     Dates: start: 202312
  34. SULFASALAZINE [Concomitant]
     Active Substance: SULFASALAZINE
     Dosage: 1 G, 2X/DAY(OTHER- NOT INDICATED)
     Dates: start: 202312

REACTIONS (19)
  - Skin cancer [Recovered/Resolved]
  - Inflammatory bowel disease [Not Recovered/Not Resolved]
  - Glaucoma [Unknown]
  - Vomiting [Not Recovered/Not Resolved]
  - Dysgeusia [Unknown]
  - Ulcer [Unknown]
  - Dehydration [Unknown]
  - Heart rate decreased [Not Recovered/Not Resolved]
  - Abdominal discomfort [Not Recovered/Not Resolved]
  - Food intolerance [Not Recovered/Not Resolved]
  - Burning sensation [Recovered/Resolved]
  - Nausea [Recovered/Resolved]
  - Condition aggravated [Not Recovered/Not Resolved]
  - Abdominal pain upper [Not Recovered/Not Resolved]
  - Abdominal pain [Unknown]
  - Diverticulum [Not Recovered/Not Resolved]
  - Renal disorder [Not Recovered/Not Resolved]
  - Off label use [Unknown]
  - Product use issue [Unknown]

NARRATIVE: CASE EVENT DATE: 20230323
